FAERS Safety Report 4316793-8 (Version None)
Quarter: 2004Q1

REPORT INFORMATION
  Report Type: 
  Country: None (occurrence: None)
  Receive Date: 20040308
  Receipt Date: 20031124
  Transmission Date: 20041129
  Serious: No
  Sender: FDA-Public Use
  Company Number: PHEH2003US10876

PATIENT
  Sex: Female

DRUGS (1)
  1. GLEEVEC [Suspect]
     Dosage: 400 MG, QD, ORAL
     Route: 048

REACTIONS (3)
  - ECZEMA [None]
  - PRURITUS [None]
  - URTICARIA [None]
